FAERS Safety Report 6129664-1 (Version None)
Quarter: 2009Q1

REPORT INFORMATION
  Report Type: 
  Country: None (occurrence: None)
  Receive Date: 20090324
  Receipt Date: 20090312
  Transmission Date: 20090719
  Serious: Yes (Hospitalization)
  Sender: FDA-Public Use
  Company Number: DE-ELI_LILLY_AND_COMPANY-DE200903003278

PATIENT
  Age: 45 Year
  Sex: Female
  Weight: 65 kg

DRUGS (9)
  1. CYMBALTA [Suspect]
     Indication: MULTIPLE SCLEROSIS
     Dosage: 30 MG, DAILY (1/D)
     Route: 048
     Dates: start: 20081118, end: 20081118
  2. IBUPROFEN TABLETS [Concomitant]
     Indication: PAIN
     Dosage: 400 MG, ONE EVERY TWO DAYS
     Route: 048
     Dates: start: 20050101, end: 20081119
  3. URBASON /00049601/ [Concomitant]
     Indication: MULTIPLE SCLEROSIS
     Dosage: 1 G, DAILY (1/D)
     Route: 042
     Dates: start: 20081114, end: 20081118
  4. ACIC [Concomitant]
     Indication: HERPES SIMPLEX
     Dosage: 200 MG, DAILY (1/D)
     Route: 048
     Dates: start: 20080901
  5. BETAFERON /05982701/ [Concomitant]
     Indication: MULTIPLE SCLEROSIS
     Dosage: 250 UG/ ML, ONE EVERY TWO DAYS
     Route: 058
     Dates: start: 20050101
  6. LYRICA [Concomitant]
     Indication: PAIN
     Dosage: ONE IN THE MORNING AND TWO IN THE EVENING
     Route: 048
     Dates: start: 20070201
  7. PANTOZOL [Concomitant]
     Indication: PROPHYLAXIS
     Dosage: UNK, UNKNOWN
     Route: 065
     Dates: start: 20081114, end: 20081118
  8. PANTOZOL [Concomitant]
     Dosage: 40 MG, ONCE
     Route: 042
     Dates: start: 20081120
  9. PANTOZOL [Concomitant]
     Dosage: 2 D/F, DAILY (1/D)
     Route: 048

REACTIONS (3)
  - GASTRITIS EROSIVE [None]
  - NAUSEA [None]
  - OESOPHAGEAL CANDIDIASIS [None]
